FAERS Safety Report 6565535-4 (Version None)
Quarter: 2010Q1

REPORT INFORMATION
  Report Type: 
  Country: None (occurrence: None)
  Receive Date: 20100201
  Receipt Date: 20100119
  Transmission Date: 20100710
  Serious: Yes (Other)
  Sender: FDA-Public Use
  Company Number: CA-GENENTECH-283541

PATIENT
  Sex: Female
  Weight: 59 kg

DRUGS (2)
  1. OMALIZUMAB [Suspect]
     Indication: ASTHMA
     Dosage: 300 MG, 2/WEEK
     Route: 058
     Dates: start: 20060508
  2. BRICANYL [Concomitant]
     Indication: ASTHMA

REACTIONS (1)
  - BRONCHITIS [None]
